FAERS Safety Report 7067870-2 (Version None)
Quarter: 2010Q4

REPORT INFORMATION
  Report Type: 
  Country: None (occurrence: None)
  Receive Date: 20101028
  Receipt Date: 20101019
  Transmission Date: 20110411
  Serious: Yes (Other)
  Sender: FDA-Public Use
  Company Number: ZA-PFIZER INC-2010133671

PATIENT
  Age: 44 Year
  Sex: Female

DRUGS (4)
  1. ZIPRASIDONE HCL [Suspect]
     Indication: SCHIZOAFFECTIVE DISORDER
     Dosage: 40 MG, 3X/DAY
     Route: 048
  2. ZIPRASIDONE HCL [Suspect]
     Indication: PERSONALITY DISORDER
  3. LITHIUM [Concomitant]
     Dosage: UNK
     Route: 048
  4. LAMOTRIGINE [Concomitant]
     Dosage: UNK
     Route: 048

REACTIONS (2)
  - DYSKINESIA [None]
  - PARANOIA [None]
